FAERS Safety Report 9585696 (Version 1)
Quarter: 2013Q4

REPORT INFORMATION
  Report Type: Spontaneous
  Country: CA (occurrence: CA)
  Receive Date: 20131003
  Receipt Date: 20131003
  Transmission Date: 20140711
  Serious: Yes (Other)
  Sender: FDA-Public Use
  Company Number: CA-AMGEN-CANSP2013068276

PATIENT
  Age: 70 Year
  Sex: Male

DRUGS (1)
  1. XGEVA [Suspect]
     Indication: NEOPLASM MALIGNANT
     Dosage: 120 MG,/1.7ML
     Route: 065
     Dates: start: 20120727

REACTIONS (2)
  - Vocal cord paralysis [Not Recovered/Not Resolved]
  - Aphonia [Not Recovered/Not Resolved]
